FAERS Safety Report 8531990-3 (Version None)
Quarter: 2012Q3

REPORT INFORMATION
  Report Type: 
  Country: None (occurrence: None)
  Receive Date: 20120723
  Receipt Date: 20120713
  Transmission Date: 20120928
  Serious: Yes (Other)
  Sender: FDA-Public Use
  Company Number: PL-JNJFOC-20120703197

PATIENT
  Age: 27 Year
  Sex: Male

DRUGS (4)
  1. REMICADE [Suspect]
     Indication: PUSTULAR PSORIASIS
     Route: 042
     Dates: start: 20110301
  2. CYCLOSPORINE [Concomitant]
     Indication: PUSTULAR PSORIASIS
     Dosage: 3-5 MG/KG
     Route: 065
  3. REMICADE [Suspect]
     Route: 042
     Dates: start: 20051001, end: 20070401
  4. CYCLOSPORINE [Concomitant]
     Route: 065
     Dates: start: 20051001

REACTIONS (3)
  - ERYTHEMA MULTIFORME [None]
  - ACINETOBACTER INFECTION [None]
  - STAPHYLOCOCCAL INFECTION [None]
